FAERS Safety Report 4276481-3 (Version None)
Quarter: 2004Q1

REPORT INFORMATION
  Report Type: 
  Country: None (occurrence: None)
  Receive Date: 20040120
  Receipt Date: 20040107
  Transmission Date: 20041129
  Serious: Yes (Other)
  Sender: FDA-Public Use
  Company Number: 2003120465

PATIENT
  Age: 36 Year
  Sex: Female

DRUGS (3)
  1. DOXYCYCLINE [Suspect]
     Indication: ACNE
     Dosage: 100 MG (DAILY), ORAL
     Route: 048
     Dates: start: 20030101, end: 20031101
  2. DOXYCYCLINE [Suspect]
     Indication: ACNE
     Dosage: 100 MG (DAILY), ORAL
     Route: 048
     Dates: start: 20031101, end: 20031121
  3. ESTRADIOL [Concomitant]

REACTIONS (3)
  - AGEUSIA [None]
  - PHARMACEUTICAL PRODUCT COMPLAINT [None]
  - SINUS DISORDER [None]
